FAERS Safety Report 8422682-X (Version None)
Quarter: 2012Q2

REPORT INFORMATION
  Report Type: 
  Country: None (occurrence: None)
  Receive Date: 20120608
  Receipt Date: 20120604
  Transmission Date: 20120825
  Serious: Yes (Other)
  Sender: FDA-Public Use
  Company Number: US-ROCHE-1074869

PATIENT
  Sex: Female

DRUGS (5)
  1. LIPITOR [Concomitant]
     Indication: BLOOD CHOLESTEROL
     Route: 048
  2. ZYRTEC [Concomitant]
     Route: 048
  3. CALCIUM [Concomitant]
     Route: 048
  4. LUCENTIS [Suspect]
     Indication: AGE-RELATED MACULAR DEGENERATION
     Dosage: FREQUENCY: 4-6 WEEKS; ROUTE: OS
     Dates: start: 20120514
  5. SYNTHROID [Concomitant]
     Route: 048

REACTIONS (2)
  - VITREOUS FLOATERS [None]
  - VISUAL ACUITY REDUCED [None]
